FAERS Safety Report 9596846 (Version 1)
Quarter: 2013Q4

REPORT INFORMATION
  Report Type: Report from Study
  Country: CO (occurrence: CO)
  Receive Date: 20131004
  Receipt Date: 20131004
  Transmission Date: 20140711
  Serious: Yes (Other)
  Sender: FDA-Public Use
  Company Number: CO-ABBVIE-13P-036-1154378-00

PATIENT
  Age: 77 Year
  Sex: Female
  Weight: 50 kg

DRUGS (1)
  1. HUMIRA [Suspect]
     Indication: RHEUMATOID ARTHRITIS
     Route: 058
     Dates: start: 20090601, end: 20130409

REACTIONS (5)
  - Ejection fraction abnormal [Recovering/Resolving]
  - Mitral valve disease mixed [Recovering/Resolving]
  - Dilatation atrial [Recovering/Resolving]
  - Aortic calcification [Recovering/Resolving]
  - Aortic arteriosclerosis [Recovering/Resolving]
